FAERS Safety Report 11938367 (Version 1)
Quarter: 2016Q1

REPORT INFORMATION
  Report Type: Report from Study
  Country: US (occurrence: US)
  Receive Date: 20160122
  Receipt Date: 20160122
  Transmission Date: 20160526
  Serious: No
  Sender: FDA-Public Use
  Company Number: US-009507513-2005-09-1494

PATIENT
  Sex: Female

DRUGS (2)
  1. PEGINTERFERON ALFA-2B [Suspect]
     Active Substance: PEGINTERFERON ALFA-2B
     Indication: HEPATITIS C
     Dosage: DOSE: UNKNOWN
     Dates: end: 200506
  2. MK-8908 [Suspect]
     Active Substance: INVESTIGATIONAL PRODUCT
     Indication: HEPATITIS C
     Dosage: DOSE: UNKNOWN
     Route: 048
     Dates: end: 200506

REACTIONS (2)
  - No adverse event [Unknown]
  - Exposure during pregnancy [Unknown]
